FAERS Safety Report 17002465 (Version 1)
Quarter: 2019Q4

REPORT INFORMATION
  Report Type: Report from Study
  Country: US (occurrence: US)
  Receive Date: 20191107
  Receipt Date: 20191107
  Transmission Date: 20200122
  Serious: Yes (Other)
  Sender: FDA-Public Use
  Company Number: US-ROCHE-2403624

PATIENT
  Age: 77 Year
  Sex: Male
  Weight: 103.97 kg

DRUGS (1)
  1. ESBRIET [Suspect]
     Active Substance: PIRFENIDONE
     Indication: IDIOPATHIC PULMONARY FIBROSIS
     Dosage: THREE PILLS THREE TIMES A DAY
     Route: 048
     Dates: start: 20180801

REACTIONS (2)
  - Unevaluable event [Unknown]
  - Hypoxia [Unknown]

NARRATIVE: CASE EVENT DATE: 201812
